FAERS Safety Report 17653535 (Version 1)
Quarter: 2020Q2

REPORT INFORMATION
  Report Type: Spontaneous
  Country: US (occurrence: US)
  Receive Date: 20200409
  Receipt Date: 20200409
  Transmission Date: 20200713
  Serious: No
  Sender: FDA-Public Use
  Company Number: US-NEUROCRINE BIOSCIENCES INC.-2020NBI01113

PATIENT
  Sex: Male

DRUGS (1)
  1. INGREZZA [Suspect]
     Active Substance: VALBENAZINE
     Indication: EYE MOVEMENT DISORDER
     Dosage: 5 DOSES

REACTIONS (2)
  - Sedation [Unknown]
  - Lethargy [Unknown]

NARRATIVE: CASE EVENT DATE: 20200327
